FAERS Safety Report 4998773-2 (Version None)
Quarter: 2006Q2

REPORT INFORMATION
  Report Type: 
  Country: None (occurrence: None)
  Receive Date: 20060509
  Receipt Date: 20060428
  Transmission Date: 20061013
  Serious: Yes (Other)
  Sender: FDA-Public Use
  Company Number: 2006S1002586

PATIENT
  Age: 74 Year
  Sex: Male
  Weight: 68.0396 kg

DRUGS (9)
  1. FENTANYL TRANSDERMAL SYSTEM [Suspect]
     Indication: DECUBITUS ULCER
     Dosage: 50 UG/HR;Q3D;TRANS
     Route: 062
     Dates: start: 20050201
  2. FENTANYL TRANSDERMAL SYSTEM [Suspect]
     Indication: PAIN
     Dosage: 50 UG/HR;Q3D;TRANS
     Route: 062
     Dates: start: 20050201
  3. PARACETAMOL [Concomitant]
  4. AMANTADINE HCL [Concomitant]
  5. HYDROCHLORIDE [Concomitant]
  6. LORAZEPAM [Concomitant]
  7. MIRTAZAPINE [Concomitant]
  8. BISACODYL [Concomitant]
  9. DOCUSATE SODIUM/BISACODYL [Concomitant]

REACTIONS (8)
  - ASTHENIA [None]
  - CONDITION AGGRAVATED [None]
  - CRYING [None]
  - HYPERTENSION [None]
  - MEDICAL DEVICE COMPLICATION [None]
  - PAIN [None]
  - PHARMACEUTICAL PRODUCT COMPLAINT [None]
  - STRESS [None]
